FAERS Safety Report 4509598-6 (Version None)
Quarter: 2004Q4

REPORT INFORMATION
  Report Type: 
  Country: None (occurrence: None)
  Receive Date: 20041119
  Receipt Date: 20041105
  Transmission Date: 20050328
  Serious: Yes (Hospitalization)
  Sender: FDA-Public Use
  Company Number: 207346

PATIENT
  Sex: Female

DRUGS (3)
  1. AVONEX [Suspect]
     Indication: MULTIPLE SCLEROSIS
     Dosage: 30 MCG QW IM
     Route: 030
     Dates: end: 20040901
  2. AVONEX [Suspect]
     Indication: MULTIPLE SCLEROSIS
     Dosage: 30 MCG QW IM
     Route: 030
     Dates: start: 20041001
  3. NSAIDS [Concomitant]

REACTIONS (13)
  - CHOLELITHIASIS [None]
  - DECUBITUS ULCER [None]
  - DRUG HYPERSENSITIVITY [None]
  - DRUG TOLERANCE [None]
  - FUNGAL INFECTION [None]
  - INCONTINENCE [None]
  - INTESTINAL OBSTRUCTION [None]
  - INTESTINAL PERFORATION [None]
  - POSTOPERATIVE INFECTION [None]
  - RENAL FAILURE [None]
  - SWELLING [None]
  - WEIGHT DECREASED [None]
  - WOUND EVISCERATION [None]
